FAERS Safety Report 13115324 (Version 1)
Quarter: 2017Q1

REPORT INFORMATION
  Report Type: Spontaneous
  Country: US (occurrence: US)
  Receive Date: 20170113
  Receipt Date: 20170113
  Transmission Date: 20170428
  Serious: No
  Sender: FDA-Public Use
  Company Number: US-PERRIGO-16US018543

PATIENT
  Age: 35 Year
  Sex: Male

DRUGS (1)
  1. ACETAMINOPHEN-ASPIRIN-CAFFEINE [Suspect]
     Active Substance: ACETAMINOPHEN\ASPIRIN\CAFFEINE
     Indication: HEADACHE
     Dosage: 2 TABLETS, TWICE WITHIN 30 MINUTES
     Route: 048
     Dates: start: 20160722, end: 20160722

REACTIONS (4)
  - Nausea [Unknown]
  - Fatigue [Unknown]
  - Drug ineffective [Unknown]
  - Inappropriate schedule of drug administration [Recovered/Resolved]

NARRATIVE: CASE EVENT DATE: 20160722
